FAERS Safety Report 6987830-7 (Version None)
Quarter: 2010Q3

REPORT INFORMATION
  Report Type: 
  Country: None (occurrence: None)
  Receive Date: 20100916
  Receipt Date: 20100914
  Transmission Date: 20110219
  Serious: Yes (Life-Threatening, Hospitalization)
  Sender: FDA-Public Use
  Company Number: CN-SANOFI-AVENTIS-2010SA051525

PATIENT
  Age: 66 Year
  Sex: Female
  Weight: 48 kg

DRUGS (5)
  1. DOCETAXEL [Suspect]
     Indication: NON-SMALL CELL LUNG CANCER
     Route: 041
     Dates: start: 20100421, end: 20100421
  2. DOCETAXEL [Suspect]
     Route: 041
  3. CARBOPLATIN [Suspect]
     Indication: NON-SMALL CELL LUNG CANCER
     Route: 041
     Dates: start: 20100421, end: 20100421
  4. CARBOPLATIN [Suspect]
     Route: 041
  5. VALSARTAN [Concomitant]
     Indication: HYPERTENSION

REACTIONS (2)
  - HYPOKALAEMIA [None]
  - URINARY RETENTION [None]
